FAERS Safety Report 8413760-X (Version None)
Quarter: 2012Q2

REPORT INFORMATION
  Report Type: 
  Country: None (occurrence: None)
  Receive Date: 20120605
  Receipt Date: 20120521
  Transmission Date: 20120825
  Serious: Yes (Hospitalization)
  Sender: FDA-Public Use
  Company Number: JP-WATSON-2012-07729

PATIENT
  Age: 61 Year
  Sex: Male

DRUGS (3)
  1. PACLITAXEL [Suspect]
     Indication: LUNG NEOPLASM MALIGNANT
     Dosage: UNK
     Route: 065
     Dates: end: 20090701
  2. H1N1 VACCINATION [Suspect]
     Indication: INFLUENZA IMMUNISATION
     Dosage: UNK
     Route: 065
     Dates: start: 20091101
  3. CARBOPLATIN [Suspect]
     Indication: LUNG NEOPLASM MALIGNANT
     Dosage: UNK
     Route: 065
     Dates: end: 20090701

REACTIONS (2)
  - TRAUMATIC LUNG INJURY [None]
  - RESPIRATORY TRACT INFECTION [None]
